FAERS Safety Report 10281597 (Version 1)
Quarter: 2014Q3

REPORT INFORMATION
  Report Type: Spontaneous
  Country: FR (occurrence: FR)
  Receive Date: 20140707
  Receipt Date: 20140707
  Transmission Date: 20150326
  Serious: Yes (Hospitalization)
  Sender: FDA-Public Use
  Company Number: FR-MYLANLABS-2014S1015112

PATIENT
  Age: 59 Year
  Sex: Male

DRUGS (5)
  1. AZATHIOPRINE. [Suspect]
     Active Substance: AZATHIOPRINE
     Indication: OFF LABEL USE
     Dosage: 150 MG/DAY
     Route: 048
  2. PREDNISONE. [Suspect]
     Active Substance: PREDNISONE
     Indication: MUSCULAR WEAKNESS
     Dosage: 60 MG/DAY FOR 4 WEEKS, THEN TAPERED TO 20 MG/DAY
     Route: 048
  3. PREDNISONE. [Suspect]
     Active Substance: PREDNISONE
     Indication: MUSCULAR WEAKNESS
     Dosage: 20 MG/DAY FOR 14 MONTHS
     Route: 048
  4. AZATHIOPRINE. [Suspect]
     Active Substance: AZATHIOPRINE
     Indication: OPHTHALMOPLEGIA
     Dosage: 150 MG/DAY
     Route: 048
  5. AZATHIOPRINE. [Suspect]
     Active Substance: AZATHIOPRINE
     Indication: EYELID PTOSIS
     Dosage: 150 MG/DAY
     Route: 048

REACTIONS (1)
  - Necrotising herpetic retinopathy [Not Recovered/Not Resolved]
